FAERS Safety Report 7606852 (Version 4)
Quarter: 2014Q2

REPORT INFORMATION
  Report Type: Report from Study
  Country: US (occurrence: US)
  Receive Date: 20100927
  Receipt Date: 20140617
  Transmission Date: 20141212
  Serious: Yes (Life-Threatening, Hospitalization, Disabling, Other)
  Sender: FDA-Public Use
  Company Number: PHHY2010US60570

PATIENT
  Age: 18 Year
  Sex: Female
  Weight: 63 kg

DRUGS (13)
  1. NEORAL [Suspect]
     Indication: RENAL TRANSPLANT
     Dosage: 150 MG, DAILY
     Route: 048
     Dates: start: 19910210
  2. NEORAL [Suspect]
     Indication: PROPHYLAXIS AGAINST TRANSPLANT REJECTION
     Dosage: 125 MG, DAILY
     Route: 048
     Dates: start: 19990101
  3. IMURAN [Concomitant]
     Indication: RENAL TRANSPLANT
     Dosage: 100 MG, DAILY
     Route: 042
     Dates: start: 19910210
  4. IMURAN [Concomitant]
     Indication: PROPHYLAXIS AGAINST TRANSPLANT REJECTION
     Dosage: 25 MG, DAILY
     Route: 042
     Dates: start: 20080121
  5. PREDNISONE [Concomitant]
     Indication: PROPHYLAXIS AGAINST TRANSPLANT REJECTION
     Dosage: 50 MG, DAILY
     Route: 048
     Dates: start: 19910210
  6. PREDNISONE [Concomitant]
     Dosage: 5 MG, DAILY
     Route: 048
     Dates: start: 19960101
  7. ARANESP [Concomitant]
     Dosage: 25 UG, DAILY
     Dates: start: 20080630
  8. ALLOPURINOL [Concomitant]
     Indication: GOUT
     Dosage: 100 MG, DAILY
     Dates: start: 20040101
  9. ACTONEL [Concomitant]
     Indication: OSTEOPOROSIS
     Dosage: 150 MG, DAILY
     Dates: start: 20020101
  10. RAMIPRIL [Concomitant]
     Indication: HYPERTENSION
     Dosage: 5 MG, DAILY
     Dates: start: 20020101
  11. RAMIPRIL [Concomitant]
     Dosage: 2.5 MG, DAILY
     Dates: start: 20080630
  12. SIMVASTATIN [Concomitant]
     Indication: BLOOD CHOLESTEROL INCREASED
     Dosage: 40 MG, DAILY
     Dates: start: 20080101
  13. SIMVASTATIN [Concomitant]
     Dosage: 20 MG, DAILY
     Dates: start: 20080630

REACTIONS (10)
  - Cervix carcinoma [Recovered/Resolved]
  - Malignant melanoma [Unknown]
  - Molluscum contagiosum [Unknown]
  - Pharyngeal oedema [Recovered/Resolved]
  - Pneumonia [Recovered/Resolved]
  - Clostridium difficile infection [Recovered/Resolved]
  - Major depression [Unknown]
  - Generalised anxiety disorder [Unknown]
  - Gout [Unknown]
  - Anaemia of chronic disease [Unknown]
